FAERS Safety Report 9490669 (Version 1)
Quarter: 2013Q3

REPORT INFORMATION
  Report Type: Spontaneous
  Country: US (occurrence: None)
  Receive Date: 20130828
  Receipt Date: 20130828
  Transmission Date: 20140515
  Serious: Yes (Hospitalization)
  Sender: FDA-Public Use
  Company Number: None

PATIENT
  Sex: Male

DRUGS (2)
  1. VELCADE [Suspect]
     Indication: PLASMA CELL MYELOMA
     Dates: start: 201103, end: 201211
  2. DEXAMETHASONE [Suspect]
     Indication: PLASMA CELL MYELOMA
     Dates: start: 201103, end: 201211

REACTIONS (7)
  - Neuropathy peripheral [None]
  - Balance disorder [None]
  - Local swelling [None]
  - Swelling face [None]
  - Local swelling [None]
  - Disorientation [None]
  - Motor dysfunction [None]
